FAERS Safety Report 4773368-4 (Version None)
Quarter: 2005Q3

REPORT INFORMATION
  Report Type: 
  Country: None (occurrence: None)
  Receive Date: 20050916
  Receipt Date: 20050902
  Transmission Date: 20060218
  Serious: Yes (Other)
  Sender: FDA-Public Use
  Company Number: 8011641

PATIENT
  Age: 12 Year
  Sex: Female

DRUGS (5)
  1. KEPPRA [Suspect]
     Indication: CONVULSION
     Dosage: 250 MG 2/D PO
     Route: 048
     Dates: start: 20050601, end: 20050101
  2. KEPPRA [Suspect]
     Indication: CONVULSION
     Dosage: 250 MG PO
     Route: 048
     Dates: start: 20050901
  3. ATIVAN [Concomitant]
  4. PATANOL [Concomitant]
  5. TRILEPTAL [Concomitant]

REACTIONS (5)
  - FEELING ABNORMAL [None]
  - GRAND MAL CONVULSION [None]
  - HICCUPS [None]
  - PYREXIA [None]
  - SEDATION [None]
